FAERS Safety Report 7927112-X (Version None)
Quarter: 2011Q4

REPORT INFORMATION
  Report Type: 
  Country: None (occurrence: None)
  Receive Date: 20111116
  Receipt Date: 20111104
  Transmission Date: 20120403
  Serious: Yes (Hospitalization, Congenital Anomaly)
  Sender: FDA-Public Use
  Company Number: 1000024659

PATIENT

DRUGS (5)
  1. ESCITALOPRAM OXALATE [Suspect]
     Dosage: 10 MG (10 MG, 1 IN 1 D), TRANSPLACENTAL 5 MG (5 MG, 1 IN 1 D) TRANSPLACENTAL
     Route: 064
     Dates: start: 20101228, end: 20110209
  2. ESCITALOPRAM OXALATE [Suspect]
     Dosage: 10 MG (10 MG, 1 IN 1 D), TRANSPLACENTAL 5 MG (5 MG, 1 IN 1 D) TRANSPLACENTAL
     Route: 064
     Dates: start: 20100701, end: 20100918
  3. ESCITALOPRAM OXALATE [Suspect]
     Dosage: 10 MG (10 MG, 1 IN 1 D), TRANSPLACENTAL 5 MG (5 MG, 1 IN 1 D) TRANSPLACENTAL
     Route: 064
     Dates: start: 20101013, end: 20101228
  4. LEXATIN (LEXATIN) [Suspect]
     Dosage: 3 MG (1.5 MG, 2 IN 1 D), TRANSPLACENTAL 1.5 MG (1.5 MG, 1 IN 1 D), TRANSPLACENTAL
     Route: 064
     Dates: start: 20101013, end: 20101124
  5. LEXATIN (LEXATIN) [Suspect]
     Dosage: 3 MG (1.5 MG, 2 IN 1 D), TRANSPLACENTAL 1.5 MG (1.5 MG, 1 IN 1 D), TRANSPLACENTAL
     Route: 064
     Dates: start: 20101124, end: 20110209

REACTIONS (9)
  - HYPOGLYCAEMIA NEONATAL [None]
  - MATERNAL DRUGS AFFECTING FOETUS [None]
  - PERIVENTRICULAR LEUKOMALACIA [None]
  - HYPERINSULINISM [None]
  - MACROCEPHALY [None]
  - PATENT DUCTUS ARTERIOSUS [None]
  - FOETAL DISTRESS SYNDROME [None]
  - CAESAREAN SECTION [None]
  - PREMATURE BABY [None]
